FAERS Safety Report 23662985 (Version 1)
Quarter: 2024Q1

REPORT INFORMATION
  Report Type: Other
  Country: CN (occurrence: CN)
  Receive Date: 20240322
  Receipt Date: 20240322
  Transmission Date: 20240410
  Serious: Yes (Other)
  Sender: FDA-Public Use
  Company Number: CN-GE HEALTHCARE-2024CSU002627

PATIENT
  Age: 46 Year
  Sex: Female
  Weight: 61 kg

DRUGS (1)
  1. OMNIPAQUE [Suspect]
     Active Substance: IOHEXOL
     Indication: Computerised tomogram
     Dosage: 80 ML, TOTAL
     Route: 042
     Dates: start: 20240312, end: 20240312

REACTIONS (3)
  - Back pain [Recovered/Resolved]
  - Contrast media allergy [Recovered/Resolved]
  - Tremor [Recovered/Resolved]

NARRATIVE: CASE EVENT DATE: 20240312
